FAERS Safety Report 4942859-5 (Version None)
Quarter: 2006Q1

REPORT INFORMATION
  Report Type: 
  Country: None (occurrence: None)
  Receive Date: 20060309
  Receipt Date: 20060227
  Transmission Date: 20060701
  Serious: Yes (Hospitalization)
  Sender: FDA-Public Use
  Company Number: 2006029300

PATIENT
  Sex: Male

DRUGS (3)
  1. ZOLOFT [Suspect]
     Indication: ILL-DEFINED DISORDER
     Dosage: ORAL
     Route: 048
  2. ALVEDON (PARACETAMOL) [Concomitant]
  3. TRAMADOL HYDROCHLORIDE [Concomitant]

REACTIONS (3)
  - ANAEMIA [None]
  - DUODENAL ULCER [None]
  - HAEMATEMESIS [None]
